FAERS Safety Report 21350543 (Version 2)
Quarter: 2022Q4

REPORT INFORMATION
  Report Type: Spontaneous
  Country: US (occurrence: US)
  Receive Date: 20220919
  Receipt Date: 20221001
  Transmission Date: 20230113
  Serious: No
  Sender: FDA-Public Use
  Company Number: US-LUPIN PHARMACEUTICALS INC.-2022-11112

PATIENT
  Age: 62 Year
  Sex: Female
  Weight: 58.957 kg

DRUGS (2)
  1. DULOXETINE DELAYED-RELEASE DELAYED-RELEASE [Suspect]
     Active Substance: DULOXETINE HYDROCHLORIDE
     Indication: Depression
     Dosage: 60 MG, QD
     Route: 048
  2. BUPRENORPHINE AND NALOXONE [Concomitant]
     Active Substance: BUPRENORPHINE HYDROCHLORIDE\NALOXONE HYDROCHLORIDE
     Indication: Pain
     Dosage: UNK
     Route: 060

REACTIONS (4)
  - Illness [Recovered/Resolved]
  - Vomiting [Recovered/Resolved]
  - Cerebral disorder [Not Recovered/Not Resolved]
  - Product dose omission issue [Unknown]
